FAERS Safety Report 8988259 (Version 2)
Quarter: 2013Q2

REPORT INFORMATION
  Report Type: Report from Study
  Country: TW (occurrence: TW)
  Receive Date: 20121227
  Receipt Date: 20130621
  Transmission Date: 20140414
  Serious: Yes (Other)
  Sender: FDA-Public Use
  Company Number: TW-ROCHE-1170224

PATIENT
  Age: 40 Year
  Sex: Male
  Weight: 67.6 kg

DRUGS (1)
  1. PEG-INTERFERON ALFA 2A [Suspect]
     Indication: HEPATITIS B
     Route: 058
     Dates: start: 20120814

REACTIONS (1)
  - Hepatitis [Recovered/Resolved]
